FAERS Safety Report 9110782 (Version 1)
Quarter: 2013Q1

REPORT INFORMATION
  Report Type: Spontaneous
  Country: US (occurrence: US)
  Receive Date: 20130219
  Receipt Date: 20130219
  Transmission Date: 20140127
  Serious: No
  Sender: FDA-Public Use
  Company Number: US-BRISTOL-MYERS SQUIBB COMPANY-16325177

PATIENT
  Age: 36 Year
  Sex: Female

DRUGS (1)
  1. ORENCIA [Suspect]
     Dosage: LAST INFUSION ON 31AUG2011 RESTARTED ORENCIA WITH AN INFUSION ON 23DEC2011
     Route: 058
     Dates: start: 201104

REACTIONS (1)
  - Injection site reaction [Unknown]
